FAERS Safety Report 7634687-7 (Version None)
Quarter: 2011Q3

REPORT INFORMATION
  Report Type: 
  Country: None (occurrence: None)
  Receive Date: 20110725
  Receipt Date: 20080129
  Transmission Date: 20111222
  Serious: Yes (Death, Hospitalization, Other)
  Sender: FDA-Public Use
  Company Number: US-BAYER-200816189NA

PATIENT
  Age: 74 Year
  Sex: Male
  Weight: 83.9 kg

DRUGS (31)
  1. HEPARIN [Concomitant]
     Dosage: UNK
     Dates: start: 20060827
  2. MORPHINE SULFATE [Concomitant]
     Dosage: 4 MG, UNK
     Route: 042
     Dates: start: 20060827
  3. DOPAMINE HCL [Concomitant]
     Dosage: UNK
     Route: 042
     Dates: start: 20060827
  4. PRIMACOR [Concomitant]
     Dosage: 0.3 MCG/KG/MIN
     Route: 042
     Dates: start: 20060830
  5. MANNITOL [Concomitant]
     Dosage: UNK
     Route: 042
     Dates: start: 20060830
  6. TRASYLOL [Suspect]
     Indication: AORTIC VALVE REPLACEMENT
     Dosage: 50 ML/HOUR, INFUSION
     Route: 042
     Dates: start: 20060830, end: 20060830
  7. NITROGLYCERIN [Concomitant]
     Dosage: UNK
     Route: 042
     Dates: start: 20060830
  8. AMIODARONE HCL [Concomitant]
     Route: 048
  9. ANCEF [Concomitant]
     Dosage: 1 G, UNK
     Route: 042
     Dates: start: 20060830
  10. ZOCOR [Concomitant]
     Route: 048
  11. PROTAMINE SULFATE [Concomitant]
     Dosage: 400 MG, UNK
     Route: 042
     Dates: start: 20060830
  12. LASIX [Concomitant]
     Dosage: 10 MG, UNK
     Route: 042
     Dates: start: 20060830
  13. NITROGLYCERIN [Concomitant]
     Dosage: UNK
     Dates: start: 20060827
  14. FENTANYL [Concomitant]
     Dosage: 15 MG, UNK
     Route: 042
     Dates: start: 20060830
  15. EPINEPHRINE [Concomitant]
     Dosage: 3 MCG/MIN
     Route: 042
     Dates: start: 20060830
  16. REGULAR INSULIN [Concomitant]
     Dosage: 2 U, UNK
     Dates: start: 20060830
  17. PAPAVERINE [Concomitant]
     Dosage: UNK
     Route: 013
     Dates: start: 20060830
  18. HEPARIN [Concomitant]
     Dosage: UNK
     Route: 042
     Dates: start: 20060830
  19. INTEGRILIN [Concomitant]
     Dosage: UNK
     Route: 042
     Dates: start: 20060827
  20. VERSED [Concomitant]
     Dosage: 4 MG, UNK
     Route: 042
     Dates: start: 20060830
  21. PRIMACOR [Concomitant]
     Dosage: 3.5 MG, BOLUS
     Route: 042
     Dates: start: 20060830
  22. CONTRAST MEDIA [Concomitant]
     Indication: CATHETERISATION CARDIAC
     Dosage: 100 ML, UNK
     Dates: start: 20060827
  23. LIDOCAINE [Concomitant]
     Dosage: 100 ML, UNK
     Route: 042
     Dates: start: 20060830
  24. VASOPRESSIN [Concomitant]
     Dosage: 4 U, UNK
     Route: 042
     Dates: start: 20060830
  25. TRASYLOL [Suspect]
     Indication: CORONARY ARTERY BYPASS
     Dosage: 200 ML, LOADING DOSE
     Route: 042
     Dates: start: 20060830, end: 20060830
  26. COREG [Concomitant]
     Route: 048
  27. ACETYLSALICYLIC ACID SRT [Concomitant]
     Dosage: 81 MG, UNK
     Route: 048
     Dates: start: 20060828
  28. PHENERGAN HCL [Concomitant]
     Dosage: 12.5 MG, UNK
     Dates: start: 20060827
  29. PANCURONIUM [Concomitant]
     Dosage: 5 MG, UNK
     Route: 042
     Dates: start: 20060830
  30. PHENYLEPHRINE HCL [Concomitant]
     Dosage: 33 MCG/MIN
     Route: 042
     Dates: start: 20060830
  31. RED BLOOD CELLS [Concomitant]
     Dosage: 1 U, UNK
     Route: 042
     Dates: start: 20060830

REACTIONS (15)
  - INJURY [None]
  - STRESS [None]
  - MULTI-ORGAN FAILURE [None]
  - RENAL IMPAIRMENT [None]
  - FEAR [None]
  - UNEVALUABLE EVENT [None]
  - RENAL INJURY [None]
  - DEATH [None]
  - RENAL FAILURE [None]
  - ANHEDONIA [None]
  - PAIN [None]
  - GENERAL PHYSICAL HEALTH DETERIORATION [None]
  - DISABILITY [None]
  - ANXIETY [None]
  - EMOTIONAL DISTRESS [None]
